FAERS Safety Report 4414638-9 (Version None)
Quarter: 2004Q3

REPORT INFORMATION
  Report Type: 
  Country: None (occurrence: None)
  Receive Date: 20040729
  Receipt Date: 20040722
  Transmission Date: 20050211
  Serious: Yes (Disabling)
  Sender: FDA-Public Use
  Company Number: UKP04000275

PATIENT
  Age: 61 Year
  Sex: Female
  Weight: 49 kg

DRUGS (2)
  1. ACTONEL [Suspect]
     Indication: OSTEOARTHRITIS
     Dosage: 35 MG, ORAL
     Route: 048
     Dates: start: 20040628, end: 20040628
  2. HYDROXOCOBALAMIN (HYDROXOCOBALAMIN) [Concomitant]

REACTIONS (5)
  - ABDOMINAL PAIN [None]
  - DIZZINESS [None]
  - HEADACHE [None]
  - SYNCOPE [None]
  - VOMITING [None]
